FAERS Safety Report 8371981-9 (Version None)
Quarter: 2012Q2

REPORT INFORMATION
  Report Type: 
  Country: None (occurrence: None)
  Receive Date: 20120518
  Receipt Date: 20120511
  Transmission Date: 20120825
  Serious: Yes (Hospitalization, Other)
  Sender: FDA-Public Use
  Company Number: JP-ROCHE-1068599

PATIENT
  Sex: Male

DRUGS (11)
  1. METHOTREXATE SODIUM [Suspect]
     Indication: RHEUMATOID ARTHRITIS
     Route: 048
  2. DICLOFENAC SODIUM [Concomitant]
     Route: 048
  3. CYTOTEC [Concomitant]
     Indication: PROPHYLAXIS
     Route: 048
  4. CALFINA [Concomitant]
     Indication: OSTEOPOROSIS
     Route: 048
  5. ACTEMRA [Suspect]
     Indication: RHEUMATOID ARTHRITIS
     Route: 041
     Dates: start: 20090917, end: 20091225
  6. ACTEMRA [Suspect]
     Route: 041
     Dates: start: 20100122, end: 20100830
  7. ACTEMRA [Suspect]
     Route: 041
     Dates: start: 20100927, end: 20101220
  8. PREDNISOLONE [Suspect]
     Route: 048
     Dates: start: 20100212, end: 20100325
  9. PREDNISOLONE [Suspect]
     Route: 048
     Dates: start: 20100326
  10. ACTEMRA [Suspect]
     Route: 041
     Dates: start: 20110111, end: 20110322
  11. PREDNISOLONE [Suspect]
     Indication: RHEUMATOID ARTHRITIS
     Route: 048
     Dates: end: 20100211

REACTIONS (2)
  - RHEUMATOID VASCULITIS [None]
  - SUBCUTANEOUS ABSCESS [None]
